FAERS Safety Report 5007522-3 (Version None)
Quarter: 2006Q2

REPORT INFORMATION
  Report Type: 
  Country: None (occurrence: None)
  Receive Date: 20060522
  Receipt Date: 20060511
  Transmission Date: 20061013
  Serious: Yes (Hospitalization)
  Sender: FDA-Public Use
  Company Number: PHHO2006US07738

PATIENT
  Age: 72 Year
  Sex: Female
  Weight: 54.6 kg

DRUGS (10)
  1. SANDOSTATIN LAR [Suspect]
     Indication: NEUROENDOCRINE CARCINOMA
     Dosage: 30MG EVERY 28 DAYS
     Route: 030
     Dates: start: 20060118, end: 20060412
  2. RAD001 [Suspect]
     Indication: NEUROENDOCRINE CARCINOMA
     Dosage: 10 MG, QD
     Route: 048
     Dates: start: 20060119, end: 20060510
  3. XANAX [Concomitant]
     Indication: ANXIETY
  4. REMERON [Concomitant]
     Indication: DEPRESSION
  5. SYNTHROID [Concomitant]
     Indication: HYPOTHYROIDISM
  6. FOSAMAX [Concomitant]
     Indication: OSTEOPOROSIS
  7. TYLENOL (CAPLET) [Concomitant]
     Indication: PAIN
  8. ARANESP [Concomitant]
     Indication: ANAEMIA
  9. K-DUR 10 [Concomitant]
     Indication: HYPOKALAEMIA
  10. LUNESTA [Concomitant]
     Indication: INSOMNIA

REACTIONS (4)
  - COGNITIVE DISORDER [None]
  - CONFUSIONAL STATE [None]
  - DISORIENTATION [None]
  - MEMORY IMPAIRMENT [None]
